FAERS Safety Report 12929181 (Version 2)
Quarter: 2019Q1

REPORT INFORMATION
  Report Type: Spontaneous
  Country: US (occurrence: US)
  Receive Date: 20161110
  Receipt Date: 20190315
  Transmission Date: 20190417
  Serious: No
  Sender: FDA-Public Use
  Company Number: US-PFIZER INC-2016517971

PATIENT
  Sex: Female

DRUGS (6)
  1. MERCURY [Suspect]
     Active Substance: MERCURY
     Dosage: UNK
  2. HYDROCHLOROTHIAZIDE. [Suspect]
     Active Substance: HYDROCHLOROTHIAZIDE
  3. PROMETHAZINE HCL [Suspect]
     Active Substance: PROMETHAZINE HYDROCHLORIDE
     Dosage: UNK
  4. QUININE [Suspect]
     Active Substance: QUININE
     Dosage: UNK
  5. NICKEL [Suspect]
     Active Substance: NICKEL
  6. FLUORIDE [SODIUM FLUORIDE] [Suspect]
     Active Substance: SODIUM FLUORIDE

REACTIONS (1)
  - Drug hypersensitivity [Unknown]
